FAERS Safety Report 15169376 (Version 2)
Quarter: 2018Q3

REPORT INFORMATION
  Report Type: Spontaneous
  Country: FR (occurrence: FR)
  Receive Date: 20180720
  Receipt Date: 20180726
  Transmission Date: 20181010
  Serious: Yes (Hospitalization)
  Sender: FDA-Public Use
  Company Number: FR-AUROBINDO-AUR-APL-2018-033285

PATIENT
  Age: 66 Year
  Sex: Female

DRUGS (3)
  1. QUETIAPINE PROLONGED?RELEASE TABLET [Suspect]
     Active Substance: QUETIAPINE
     Dosage: 50 MG IN MORNING ()
     Route: 048
  2. QUETIAPINE PROLONGED?RELEASE TABLET [Suspect]
     Active Substance: QUETIAPINE
     Indication: BIPOLAR DISORDER
     Dosage: 100 MG SR POSOLOGY ()
     Route: 048
  3. QUETIAPINE PROLONGED?RELEASE TABLET [Suspect]
     Active Substance: QUETIAPINE
     Dosage: 300 MG SR POSOLOGY ()
     Route: 048

REACTIONS (5)
  - Cognitive disorder [Recovered/Resolved]
  - Condition aggravated [Recovered/Resolved]
  - Confusional state [Recovered/Resolved]
  - Disorientation [Recovered/Resolved]
  - Attention deficit/hyperactivity disorder [Recovered/Resolved]
